FAERS Safety Report 22100189 (Version 1)
Quarter: 2023Q1

REPORT INFORMATION
  Report Type: Spontaneous
  Country: US (occurrence: US)
  Receive Date: 20230315
  Receipt Date: 20230315
  Transmission Date: 20230417
  Serious: Yes (Life-Threatening, Hospitalization, Other)
  Sender: FDA-Public Use
  Company Number: US-009507513-2303USA002190

PATIENT
  Age: 5 Month

DRUGS (5)
  1. ZERBAXA [Suspect]
     Active Substance: CEFTOLOZANE SULFATE\TAZOBACTAM SODIUM
     Indication: Septic shock
     Dosage: UNK
     Route: 042
  2. ZERBAXA [Suspect]
     Active Substance: CEFTOLOZANE SULFATE\TAZOBACTAM SODIUM
     Indication: Pseudomonal sepsis
  3. GENTAMICIN [Suspect]
     Active Substance: GENTAMICIN
     Indication: Septic shock
     Dosage: UNK
  4. GENTAMICIN [Suspect]
     Active Substance: GENTAMICIN
     Indication: Pseudomonal sepsis
  5. MEROPENEM [Concomitant]
     Active Substance: MEROPENEM
     Indication: Arthropod bite
     Dosage: UNK

REACTIONS (7)
  - Thrombocytopenia [Recovered/Resolved]
  - Weight decreased [Recovered/Resolved]
  - Surgery [Recovered/Resolved]
  - Platelet count increased [Recovered/Resolved]
  - Overdose [Unknown]
  - Incorrect product administration duration [Unknown]
  - Product use in unapproved indication [Unknown]
